FAERS Safety Report 21034542 (Version 1)
Quarter: 2022Q3

REPORT INFORMATION
  Report Type: Spontaneous
  Country: ES (occurrence: ES)
  Receive Date: 20220701
  Receipt Date: 20220701
  Transmission Date: 20221027
  Serious: Yes (Other)
  Sender: FDA-Public Use
  Company Number: None

PATIENT
  Age: 92 Year
  Sex: Male

DRUGS (8)
  1. ERLEADA [Suspect]
     Active Substance: APALUTAMIDE
     Indication: Prostate cancer
     Dosage: 180
     Route: 048
     Dates: start: 20220517
  2. ACETAMINOPHEN [Concomitant]
     Active Substance: ACETAMINOPHEN
     Indication: Polymyalgia rheumatica
     Dosage: 1 COMPRIMIDO CADA 8 HORAS
     Route: 048
     Dates: start: 20111207
  3. ZOLADEX [Concomitant]
     Active Substance: GOSERELIN ACETATE
     Indication: Prostate cancer
     Route: 058
  4. CALCIFEDIOL [Concomitant]
     Active Substance: CALCIFEDIOL
     Indication: Osteoporosis
     Dosage: 1 CAPSULE EVERY 30 DAYS
     Route: 048
     Dates: start: 20210408
  5. EXFORGE [Concomitant]
     Active Substance: AMLODIPINE BESYLATE\VALSARTAN
     Indication: Hypertension
     Dosage: 1 TABLET EVERY 24 HOURS?EXFORGE 5 MG/160 MG FILM-COATED TABLETS
     Route: 065
     Dates: start: 20190503
  6. SINTROM [Concomitant]
     Active Substance: ACENOCOUMAROL
     Indication: Deep vein thrombosis
     Dosage: IN ANALYTICAL FUNCTION
     Route: 048
     Dates: start: 20131223
  7. BICALUTAMIDE [Concomitant]
     Active Substance: BICALUTAMIDE
     Indication: Prostate cancer
     Route: 048
  8. ALLOPURINOL [Concomitant]
     Active Substance: ALLOPURINOL
     Indication: Hyperuricaemia
     Dosage: A TABLET EVERY 24 HOURS
     Route: 048
     Dates: start: 20210408

REACTIONS (3)
  - Pruritus [Unknown]
  - Coagulopathy [Unknown]
  - Petechiae [Unknown]

NARRATIVE: CASE EVENT DATE: 20220517
